FAERS Safety Report 6204874-3 (Version None)
Quarter: 2009Q2

REPORT INFORMATION
  Report Type: 
  Country: None (occurrence: None)
  Receive Date: 20090522
  Receipt Date: 20090508
  Transmission Date: 20091009
  Serious: Yes (Other)
  Sender: FDA-Public Use
  Company Number: 000823

PATIENT

DRUGS (1)
  1. PROSTAVASIN /00501501/ (PROSTAVASIN) [Suspect]

REACTIONS (3)
  - DRUG TOXICITY [None]
  - HYPERSENSITIVITY [None]
  - RHABDOMYOLYSIS [None]
